FAERS Safety Report 4622619-5 (Version None)
Quarter: 2005Q1

REPORT INFORMATION
  Report Type: 
  Country: None (occurrence: None)
  Receive Date: 20050330
  Receipt Date: 20050316
  Transmission Date: 20050727
  Serious: Yes (Other)
  Sender: FDA-Public Use
  Company Number: GB-GLAXOSMITHKLINE-B0374942A

PATIENT
  Sex: Male

DRUGS (1)
  1. NYTOL [Suspect]
     Route: 048

REACTIONS (2)
  - COMA [None]
  - OVERDOSE [None]
